FAERS Safety Report 8132144-5 (Version None)
Quarter: 2012Q1

REPORT INFORMATION
  Report Type: 
  Country: None (occurrence: None)
  Receive Date: 20120213
  Receipt Date: 20120203
  Transmission Date: 20120608
  Serious: Yes (Hospitalization, Other)
  Sender: FDA-Public Use
  Company Number: BR-PFIZER INC-2012031470

PATIENT
  Age: 85 Year
  Sex: Female

DRUGS (7)
  1. ATENOLOL [Concomitant]
  2. ULTRACET [Concomitant]
  3. TRISORB [Concomitant]
  4. LIPITOR [Concomitant]
     Dosage: UNK
     Dates: start: 20050203
  5. WARFARIN SODIUM [Concomitant]
  6. PLAVIX [Concomitant]
  7. XALATAN [Suspect]
     Indication: GLAUCOMA
     Dosage: TWO DROPS (3 UG), 1X/DAY
     Route: 047
     Dates: start: 20040203

REACTIONS (3)
  - BEDRIDDEN [None]
  - CEREBROVASCULAR ACCIDENT [None]
  - DYSPNOEA [None]
